FAERS Safety Report 6810579-8 (Version None)
Quarter: 2010Q2

REPORT INFORMATION
  Report Type: 
  Country: None (occurrence: None)
  Receive Date: 20100630
  Receipt Date: 20100621
  Transmission Date: 20101027
  Serious: Yes (Hospitalization)
  Sender: FDA-Public Use
  Company Number: US-ABBOTT-10P-163-0653159-00

PATIENT
  Sex: Male
  Weight: 83.99 kg

DRUGS (15)
  1. NIASPAN [Suspect]
     Indication: BLOOD TRIGLYCERIDES INCREASED
     Dates: start: 20090101, end: 20090101
  2. NIASPAN [Suspect]
     Indication: BLOOD TRIGLYCERIDES INCREASED
     Dates: start: 20100101, end: 20100424
  3. NIASPAN [Suspect]
     Dates: start: 20100515, end: 20100525
  4. NIASPAN [Suspect]
     Dates: start: 20100525, end: 20100601
  5. ZETIA [Concomitant]
     Indication: BLOOD TRIGLYCERIDES INCREASED
  6. LOVASTATIN [Concomitant]
     Indication: BLOOD TRIGLYCERIDES INCREASED
  7. WARFARIN SODIUM [Concomitant]
     Indication: ATRIAL FIBRILLATION
  8. ALLOPURINOL [Concomitant]
     Indication: DRUG USE FOR UNKNOWN INDICATION
  9. ENTERIC ASPIRIN [Concomitant]
     Indication: ATRIAL FIBRILLATION
  10. AMLODIPINE [Concomitant]
     Indication: CORONARY ARTERY DISEASE
  11. ERGOCALCIFEROL [Concomitant]
     Indication: RENAL IMPAIRMENT
     Route: 065
  12. CALCITRIOL [Concomitant]
     Indication: RENAL IMPAIRMENT
  13. LASIX [Concomitant]
     Indication: CORONARY ARTERY DISEASE
  14. LASIX [Concomitant]
     Indication: HYPERTENSION
  15. LOVAZA [Concomitant]
     Indication: SUPPLEMENTATION THERAPY

REACTIONS (5)
  - LOSS OF CONSCIOUSNESS [None]
  - PALPITATIONS [None]
  - PARAESTHESIA [None]
  - PNEUMONIA [None]
  - PRURITUS [None]
